FAERS Safety Report 19483532 (Version 2)
Quarter: 2021Q3

REPORT INFORMATION
  Report Type: Spontaneous
  Country: CA (occurrence: CA)
  Receive Date: 20210701
  Receipt Date: 20210825
  Transmission Date: 20211014
  Serious: Yes (Hospitalization, Other)
  Sender: FDA-Public Use
  Company Number: CA-PFIZER INC-2021691545

PATIENT
  Age: 55 Year
  Sex: Male

DRUGS (4)
  1. METHOTREXATE SODIUM. [Suspect]
     Active Substance: METHOTREXATE SODIUM
     Indication: RHEUMATOID ARTHRITIS
     Dosage: 25 MG,WEEKLY
     Route: 065
     Dates: start: 2019
  2. HYDROXYCHLOROQUINE [Concomitant]
     Active Substance: HYDROXYCHLOROQUINE
     Dosage: 400 MG
     Route: 065
     Dates: start: 201912
  3. SULFASALAZINE. [Concomitant]
     Active Substance: SULFASALAZINE
     Indication: RHEUMATOID ARTHRITIS
     Dosage: 2 G
     Dates: start: 202011, end: 2021
  4. CELEBREX [Suspect]
     Active Substance: CELECOXIB
     Indication: RHEUMATOID ARTHRITIS
     Dosage: 2 PILLS
     Route: 048

REACTIONS (4)
  - Drug ineffective [Unknown]
  - Fatigue [Not Recovered/Not Resolved]
  - Pain [Unknown]
  - Hernia [Not Recovered/Not Resolved]

NARRATIVE: CASE EVENT DATE: 2021
